FAERS Safety Report 5021170-0 (Version None)
Quarter: 2006Q2

REPORT INFORMATION
  Report Type: 
  Country: None (occurrence: None)
  Receive Date: 20060608
  Receipt Date: 20060524
  Transmission Date: 20061013
  Serious: Yes (Hospitalization)
  Sender: FDA-Public Use
  Company Number: GBWYE652124MAY06

PATIENT
  Age: 69 Year
  Sex: Female

DRUGS (2)
  1. ENBREL [Suspect]
     Indication: DRUG USE FOR UNKNOWN INDICATION
     Dosage: UNKNOWN
     Dates: start: 20060201, end: 20060520
  2. UNSPECIFIED MEDICATION [Concomitant]
     Dosage: UNKNOWN

REACTIONS (2)
  - ANAPHYLACTIC SHOCK [None]
  - BLISTER [None]
